FAERS Safety Report 11427348 (Version 1)
Quarter: 2015Q3

REPORT INFORMATION
  Report Type: Report from Study
  Country: US (occurrence: None)
  Receive Date: 20150826
  Receipt Date: 20150826
  Transmission Date: 20151125
  Serious: Yes (Hospitalization)
  Sender: FDA-Public Use
  Company Number: 2015PL000176

PATIENT
  Age: 5 Year
  Sex: Male
  Weight: 18.9 kg

DRUGS (6)
  1. PROLEUKIN [Suspect]
     Active Substance: ALDESLEUKIN
     Indication: NEUROBLASTOMA
     Dates: start: 20150608, end: 20150611
  2. LOPERAMIDE (LOPERAMIDE) [Concomitant]
     Active Substance: LOPERAMIDE
  3. ISOTRETINOIN (ISOTRETINOIN) [Suspect]
     Active Substance: ISOTRETINOIN
     Indication: NEUROBLASTOMA
     Dates: start: 20150526, end: 20150608
  4. DINUTUXIMAB [Suspect]
     Active Substance: DINUTUXIMAB
     Indication: NEUROBLASTOMA
     Route: 048
     Dates: start: 20150615, end: 20150617
  5. ZINC OXIDE (ZINC OXIDE) [Concomitant]
  6. GRANULOCYTE MACROPHAGE COLONY STIM FACTOR [Suspect]
     Active Substance: GRANULOCYTE-MACROPHAGE COLONY-STIMULATING FACTOR
     Indication: NEUROBLASTOMA
     Dates: end: 20150528

REACTIONS (26)
  - Activated partial thromboplastin time prolonged [None]
  - Prothrombin time prolonged [None]
  - Tachycardia [None]
  - Generalised oedema [None]
  - Hyperbilirubinaemia [None]
  - Seizure [None]
  - Alanine aminotransferase increased [None]
  - Blood fibrinogen decreased [None]
  - Pancytopenia [None]
  - Hypoalbuminaemia [None]
  - Cholelithiasis [None]
  - Ascites [None]
  - Irritability [None]
  - Sinusitis [None]
  - Pyelocaliectasis [None]
  - Hypertensive encephalopathy [None]
  - Posterior reversible encephalopathy syndrome [None]
  - Postictal paralysis [None]
  - Blood bilirubin increased [None]
  - Pupils unequal [None]
  - Visual impairment [None]
  - Diarrhoea haemorrhagic [None]
  - International normalised ratio increased [None]
  - Fibrin D dimer increased [None]
  - Electrolyte imbalance [None]
  - Oxygen saturation decreased [None]

NARRATIVE: CASE EVENT DATE: 20150611
